FAERS Safety Report 17401436 (Version 1)
Quarter: 2020Q1

REPORT INFORMATION
  Report Type: Report from Study
  Country: CO (occurrence: CO)
  Receive Date: 20200211
  Receipt Date: 20200211
  Transmission Date: 20200409
  Serious: Yes (Other)
  Sender: FDA-Public Use
  Company Number: PHHY2016CH078018

PATIENT
  Age: 38 Year
  Sex: Female

DRUGS (2)
  1. SIGNIFOR [Suspect]
     Active Substance: PASIREOTIDE DIASPARTATE
     Dosage: 1.8 MG, BID
     Route: 058
     Dates: start: 20150928, end: 20180511
  2. SIGNIFOR [Suspect]
     Active Substance: PASIREOTIDE DIASPARTATE
     Indication: PITUITARY-DEPENDENT CUSHING^S SYNDROME
     Dosage: UNK MG, UNK
     Route: 058
     Dates: start: 20150822, end: 20150927

REACTIONS (4)
  - Nephrolithiasis [Unknown]
  - Bacterial test positive [Recovered/Resolved]
  - Lactobacillus test positive [Recovered/Resolved]
  - Hepatic steatosis [Unknown]

NARRATIVE: CASE EVENT DATE: 20151030
